FAERS Safety Report 9476185 (Version 1)
Quarter: 2013Q3

REPORT INFORMATION
  Report Type: Spontaneous
  Country: US (occurrence: None)
  Receive Date: 20130823
  Receipt Date: 20130823
  Transmission Date: 20140515
  Serious: Yes (Life-Threatening)
  Sender: FDA-Public Use
  Company Number: None

PATIENT
  Age: 76 Year
  Sex: Female

DRUGS (1)
  1. HYDROCODONE BITARTRATE/ACETEMINOPHEN 7.5MG/325MG315ML BOCA [Suspect]
     Indication: OROPHARYNGEAL PAIN
     Dosage: 5-15ML, EVERY 4 HOURS, BY MOUTH
     Route: 048
     Dates: start: 20130809

REACTIONS (2)
  - Pharyngeal oedema [None]
  - Dyspnoea [None]
